FAERS Safety Report 6004660-3 (Version None)
Quarter: 2008Q4

REPORT INFORMATION
  Report Type: 
  Country: None (occurrence: None)
  Receive Date: 20081216
  Receipt Date: 20081210
  Transmission Date: 20090506
  Serious: Yes (Hospitalization)
  Sender: FDA-Public Use
  Company Number: FR-ABBOTT-08P-056-0492223-00

PATIENT
  Age: 41 Year
  Sex: Female

DRUGS (2)
  1. HUMIRA [Suspect]
     Indication: ANKYLOSING SPONDYLITIS
     Route: 058
     Dates: end: 20080101
  2. UNSPECIFIED DRUG [Concomitant]
     Indication: ANKYLOSING SPONDYLITIS

REACTIONS (2)
  - EFFUSION [None]
  - PANCREATITIS ACUTE [None]
